FAERS Safety Report 6262422-6 (Version None)
Quarter: 2009Q3

REPORT INFORMATION
  Report Type: 
  Country: None (occurrence: None)
  Receive Date: 20090709
  Receipt Date: 20090622
  Transmission Date: 20100115
  Serious: Yes (Hospitalization)
  Sender: FDA-Public Use
  Company Number: CA-PURDUE-USA-2009-0039006

PATIENT
  Age: 86 Year
  Sex: Female

DRUGS (3)
  1. TRAMADOL HCL [Suspect]
     Indication: OSTEOARTHRITIS
     Dosage: 100 MG, UNK
     Route: 048
     Dates: start: 20070828, end: 20070829
  2. VALSARTAN [Concomitant]
     Dosage: 80 MG, UNK
  3. LANSOPRAZOLE [Concomitant]
     Dosage: 30 MG, UNK

REACTIONS (4)
  - ASTHENIA [None]
  - CONFUSIONAL STATE [None]
  - PNEUMONIA [None]
  - STOMATITIS [None]
